FAERS Safety Report 5467671-2 (Version None)
Quarter: 2007Q3

REPORT INFORMATION
  Report Type: 
  Country: None (occurrence: None)
  Receive Date: 20070921
  Receipt Date: 20070912
  Transmission Date: 20080115
  Serious: Yes (Hospitalization)
  Sender: FDA-Public Use
  Company Number: 070724-0000708

PATIENT
  Age: 36 Year
  Sex: Female

DRUGS (3)
  1. DACTINOMYCIN [Suspect]
     Indication: RENAL NEOPLASM
     Dosage: IV
     Route: 042
  2. METHOTREXATE [Suspect]
     Indication: RENAL NEOPLASM
     Dosage: IV
     Route: 042
     Dates: start: 20070403, end: 20070706
  3. THERAPY UNSPECIFIED [Concomitant]

REACTIONS (1)
  - RASH [None]
